FAERS Safety Report 9691747 (Version 1)
Quarter: 2013Q4

REPORT INFORMATION
  Report Type: Report from Study
  Country: DE (occurrence: DE)
  Receive Date: 20131115
  Receipt Date: 20131115
  Transmission Date: 20140711
  Serious: Yes (Death)
  Sender: FDA-Public Use
  Company Number: DE-EXELIXIS-XL18413003641

PATIENT
  Age: 72 Year
  Sex: Male
  Weight: 85 kg

DRUGS (10)
  1. XL184 [Suspect]
     Indication: PROSTATE CANCER
     Dosage: 60 MG, QD
     Route: 048
     Dates: start: 20130930
  2. PLACEBO - P [Suspect]
     Indication: PROSTATE CANCER
     Dosage: 5 MG, BID
     Route: 048
     Dates: start: 20130930
  3. VALORON [Concomitant]
  4. LACTULOSE [Concomitant]
  5. KARVEA [Concomitant]
  6. OXYCODONE [Concomitant]
  7. NALOXONE [Concomitant]
  8. PANTOZOL [Concomitant]
  9. DECODERM [Concomitant]
  10. METAMIZOLE [Concomitant]

REACTIONS (1)
  - Pulmonary embolism [Fatal]
